FAERS Safety Report 5581337-X (Version None)
Quarter: 2008Q1

REPORT INFORMATION
  Report Type: 
  Country: None (occurrence: None)
  Receive Date: 20080104
  Receipt Date: 20080103
  Transmission Date: 20080703
  Serious: Yes (Hospitalization, Disabling)
  Sender: FDA-Public Use
  Company Number: PHHO2005US07651

PATIENT
  Age: 79 Year
  Sex: Male

DRUGS (5)
  1. ZOLEDRONIC ACID [Suspect]
     Indication: OSTEOPOROTIC FRACTURE
     Dosage: UNK, IRD
     Route: 042
     Dates: start: 20020718
  2. ZOLEDRONIC ACID [Suspect]
     Dosage: 5MG, ONCE YEARLY
  3. LOVENOX [Concomitant]
     Indication: DEEP VEIN THROMBOSIS
     Dosage: 40 MG, QD
     Route: 058
     Dates: start: 20050116
  4. CALCIUM CARBONATE [Concomitant]
     Indication: OSTEOPOROTIC FRACTURE
  5. VITAMIN D [Concomitant]
     Indication: OSTEOPOROTIC FRACTURE

REACTIONS (8)
  - CELLULITIS [None]
  - CHILLS [None]
  - CONCOMITANT DISEASE PROGRESSION [None]
  - DEBRIDEMENT [None]
  - LEG AMPUTATION [None]
  - MALAISE [None]
  - OSTEOMYELITIS [None]
  - PYREXIA [None]
